FAERS Safety Report 7757906-5 (Version None)
Quarter: 2011Q3

REPORT INFORMATION
  Report Type: 
  Country: None (occurrence: None)
  Receive Date: 20110918
  Receipt Date: 20110517
  Transmission Date: 20111222
  Serious: Yes (Life-Threatening, Hospitalization, Other)
  Sender: FDA-Public Use
  Company Number: PHFR2011IE01305

PATIENT
  Sex: Male

DRUGS (7)
  1. CLOZAPINE [Suspect]
     Dosage: UNK
     Route: 048
     Dates: start: 20110214
  2. GLUCOPHAGE [Concomitant]
     Indication: TYPE 2 DIABETES MELLITUS
     Dosage: 1000 MG/DAY
     Route: 048
  3. CLOZAPINE [Suspect]
     Indication: SCHIZOPHRENIA
     Dosage: 175 MG, DAILY
     Route: 048
     Dates: start: 20020517, end: 20110211
  4. CLOZAPINE [Suspect]
     Dosage: 75 MG/DAY
     Route: 048
     Dates: start: 20110211, end: 20110211
  5. PAROXETINE HCL [Concomitant]
     Indication: DEPRESSION
     Dosage: 20 MG/DAY
     Route: 048
  6. ARIPIPRAZOLE [Concomitant]
     Indication: SCHIZOPHRENIA
     Dosage: 5 MG/DAY
     Route: 048
     Dates: end: 20110211
  7. LIPITOR [Concomitant]
     Indication: BLOOD CHOLESTEROL
     Dosage: 40 MG/DAY
     Route: 048

REACTIONS (5)
  - DIABETES MELLITUS [None]
  - PNEUMONIA [None]
  - DYSPNOEA [None]
  - SLEEP APNOEA SYNDROME [None]
  - SOMNOLENCE [None]
